FAERS Safety Report 19875818 (Version 35)
Quarter: 2024Q3

REPORT INFORMATION
  Report Type: Spontaneous
  Country: JP (occurrence: JP)
  Receive Date: 20210924
  Receipt Date: 20240918
  Transmission Date: 20241017
  Serious: Yes (Hospitalization, Other)
  Sender: SANOFI AVENTIS
  Company Number: JP-SAKK-00761448

PATIENT
  Age: 40 Year
  Sex: Male
  Weight: 100 kg

DRUGS (20)
  1. AMARYL [Suspect]
     Active Substance: GLIMEPIRIDE
     Indication: Type 2 diabetes mellitus
     Dosage: UNK
     Route: 048
  2. AMARYL [Suspect]
     Active Substance: GLIMEPIRIDE
     Dosage: STARTED TO BE TAKEN AT 1 MG FOLLOWED BY DOSE INCREASE TO 6 MG
     Route: 048
     Dates: end: 2006
  3. AMARYL [Suspect]
     Active Substance: GLIMEPIRIDE
     Dosage: 2 DF, PC
     Route: 048
     Dates: end: 2006
  4. AMARYL [Suspect]
     Active Substance: GLIMEPIRIDE
     Dosage: 6 MG
     Route: 048
     Dates: end: 2006
  5. AMARYL [Suspect]
     Active Substance: GLIMEPIRIDE
     Dosage: 4 MG
     Route: 048
     Dates: end: 2006
  6. ALLEGRA [Suspect]
     Active Substance: FEXOFENADINE HYDROCHLORIDE
     Indication: Rhinitis allergic
     Dosage: 3 DF
     Route: 048
  7. ALLEGRA [Suspect]
     Active Substance: FEXOFENADINE HYDROCHLORIDE
     Indication: Pruritus
     Dosage: 4 DF
     Route: 048
  8. ALLEGRA [Suspect]
     Active Substance: FEXOFENADINE HYDROCHLORIDE
     Dosage: UNK
     Route: 048
  9. RISPERIDONE [Suspect]
     Active Substance: RISPERIDONE
     Indication: Depression
     Dosage: UNK DF
     Route: 048
     Dates: start: 2005, end: 2021
  10. RISPERIDONE [Suspect]
     Active Substance: RISPERIDONE
     Indication: Anxiety
     Dosage: 1 MG
     Route: 048
  11. RISPERIDONE [Suspect]
     Active Substance: RISPERIDONE
     Indication: Hallucination, auditory
     Dosage: 2 MG
     Route: 048
     Dates: start: 2022
  12. INSULIN GLARGINE [Concomitant]
     Active Substance: INSULIN GLARGINE
     Indication: Type 2 diabetes mellitus
     Dosage: ADMINISTERED ONCE
     Route: 065
     Dates: start: 2006
  13. BASEN 1 [Concomitant]
     Indication: Type 2 diabetes mellitus
     Dosage: UNK
     Route: 048
     Dates: start: 2006
  14. LITHIUM CARBONATE [Concomitant]
     Active Substance: LITHIUM CARBONATE
     Indication: Persistent depressive disorder
     Route: 065
  15. RISPERDAL [Concomitant]
     Active Substance: RISPERIDONE
     Indication: Product used for unknown indication
     Route: 048
  16. RISPERDAL [Concomitant]
     Active Substance: RISPERIDONE
     Dosage: 6 TO 8 MG AIMLESSLY IN SOME PERIOD
     Route: 048
     Dates: start: 2022
  17. RISPERDAL [Concomitant]
     Active Substance: RISPERIDONE
     Dosage: 12 MG
     Route: 048
  18. PEROSPIRONE HYDROCHLORIDE [Concomitant]
     Active Substance: PEROSPIRONE HYDROCHLORIDE
     Indication: Product used for unknown indication
     Dosage: 2 DF
     Route: 048
  19. CLONAZEPAM [Concomitant]
     Active Substance: CLONAZEPAM
     Indication: Product used for unknown indication
     Dosage: UNK
     Route: 048
  20. CLONAZEPAM [Concomitant]
     Active Substance: CLONAZEPAM
     Route: 048

REACTIONS (33)
  - Hallucination [Unknown]
  - Paroxysmal perceptual alteration [Unknown]
  - Hallucination, auditory [Unknown]
  - Hyperglycaemia [Recovered/Resolved]
  - Depressed level of consciousness [Recovered/Resolved]
  - Diabetic coma [Recovered/Resolved]
  - Vomiting [Recovered/Resolved]
  - Loss of consciousness [Recovered/Resolved]
  - Fall [Recovered/Resolved]
  - Dizziness [Recovered/Resolved]
  - Dermal cyst [Recovered/Resolved]
  - Hyperlipidaemia [Unknown]
  - Dysarthria [Unknown]
  - Muscular weakness [Unknown]
  - Feeling abnormal [Unknown]
  - Blood prolactin increased [Unknown]
  - Diabetic neuropathy [Recovered/Resolved]
  - Gait inability [Recovered/Resolved]
  - Weight increased [Recovering/Resolving]
  - Back pain [Unknown]
  - Nasopharyngitis [Unknown]
  - Cough [Unknown]
  - Productive cough [Unknown]
  - Somnolence [Unknown]
  - Hallucination, auditory [Unknown]
  - Stupor [Unknown]
  - Hypoglycaemia [Unknown]
  - Tremor [Unknown]
  - White blood cell count decreased [Unknown]
  - Pruritus [Unknown]
  - Condition aggravated [Unknown]
  - Therapeutic response decreased [Unknown]
  - Neutrophil count decreased [Unknown]

NARRATIVE: CASE EVENT DATE: 20060101
